FAERS Safety Report 4480176-0 (Version None)
Quarter: 2004Q4

REPORT INFORMATION
  Report Type: 
  Country: None (occurrence: None)
  Receive Date: 20041018
  Receipt Date: 20041011
  Transmission Date: 20050328
  Serious: Yes (Hospitalization)
  Sender: FDA-Public Use
  Company Number: 2004-10-0545

PATIENT
  Age: 16 Year
  Sex: Female

DRUGS (1)
  1. INTRON A [Suspect]
     Indication: HEPATITIS C
     Dosage: 5 MU TIW SUBCUTANEOUS
     Route: 058
     Dates: start: 19970401, end: 19971001

REACTIONS (13)
  - ANAEMIA [None]
  - ASTHENIA [None]
  - BILE DUCT STENOSIS [None]
  - DECREASED APPETITE [None]
  - FEELING ABNORMAL [None]
  - HAEMANGIOMA OF LIVER [None]
  - HEPATITIS B ANTIBODY POSITIVE [None]
  - HEPATOMEGALY [None]
  - JAUNDICE [None]
  - RED BLOOD CELL SEDIMENTATION RATE INCREASED [None]
  - THROMBOCYTOPENIA [None]
  - WEIGHT DECREASED [None]
  - WHITE BLOOD CELL COUNT INCREASED [None]
